FAERS Safety Report 14745622 (Version 1)
Quarter: 2018Q2

REPORT INFORMATION
  Report Type: Spontaneous
  Country: US (occurrence: US)
  Receive Date: 20180411
  Receipt Date: 20180411
  Transmission Date: 20180711
  Serious: No
  Sender: FDA-Public Use
  Company Number: US-BAYER-2018-070428

PATIENT
  Age: 22 Year
  Sex: Male
  Weight: 75.96 kg

DRUGS (1)
  1. LOTRIMIN ULTRA ANTIFUNGAL [Suspect]
     Active Substance: BUTENAFINE HYDROCHLORIDE
     Indication: THERAPEUTIC SKIN CARE TOPICAL
     Dosage: UNK, BID
     Route: 061
     Dates: start: 20180312, end: 20180409

REACTIONS (1)
  - Drug ineffective [Unknown]
